FAERS Safety Report 6944891-9 (Version None)
Quarter: 2010Q3

REPORT INFORMATION
  Report Type: 
  Country: None (occurrence: None)
  Receive Date: 20100827
  Receipt Date: 20100818
  Transmission Date: 20110219
  Serious: Yes (Hospitalization)
  Sender: FDA-Public Use
  Company Number: FR-EISAI INC.-E3810-04030-SPO-FR

PATIENT
  Sex: Female

DRUGS (11)
  1. PARIET (RABEPRAZOLE) [Suspect]
     Dosage: UNKNOWN
     Route: 048
     Dates: end: 20100807
  2. MOTILIUM [Suspect]
     Dosage: UNKNOWN
     Route: 048
     Dates: end: 20100807
  3. PREVISCAN [Suspect]
     Route: 048
     Dates: start: 20100519, end: 20100807
  4. VALSARTAN  AND HYDROCHLOROTHIAZIDE [Suspect]
     Dosage: UNKNOWN
     Route: 048
     Dates: start: 20100401, end: 20100807
  5. SEROPLEX [Suspect]
     Dosage: UNKNOWN
     Route: 048
     Dates: end: 20100807
  6. GAVISCON [Suspect]
     Dosage: UNKNOWN
     Route: 048
     Dates: end: 20100807
  7. TAHOR [Suspect]
     Dosage: UNKNOWN
     Route: 048
     Dates: start: 20100705
  8. AMLODIPINE [Suspect]
     Dosage: UNKNOWN
     Route: 048
  9. DI-GESIC [Concomitant]
  10. OXYBUTYNIN [Concomitant]
     Dates: start: 20100720
  11. NEBIVOLOL [Concomitant]
     Route: 048
     Dates: start: 20100630

REACTIONS (1)
  - DRUG RASH WITH EOSINOPHILIA AND SYSTEMIC SYMPTOMS [None]
